FAERS Safety Report 25766195 (Version 1)
Quarter: 2025Q3

REPORT INFORMATION
  Report Type: Spontaneous
  Country: US (occurrence: US)
  Receive Date: 20250905
  Receipt Date: 20250905
  Transmission Date: 20251021
  Serious: No
  Sender: DOMPE FARMACEUTICI
  Company Number: US-FARMAPROD-202408-2859

PATIENT
  Age: 76 Year
  Sex: Female

DRUGS (28)
  1. OXERVATE [Suspect]
     Active Substance: CENEGERMIN-BKBJ
     Indication: Neurotrophic keratopathy
     Route: 047
     Dates: start: 20240708
  2. OXERVATE [Suspect]
     Active Substance: CENEGERMIN-BKBJ
  3. OXERVATE [Suspect]
     Active Substance: CENEGERMIN-BKBJ
  4. AMLODIPINE BESYLATE [Concomitant]
     Active Substance: AMLODIPINE BESYLATE
  5. CHONDROITIN SULFATE A\GLUCOSAMINE [Concomitant]
     Active Substance: CHONDROITIN SULFATE A\GLUCOSAMINE
  6. DEMANNOSE [Concomitant]
     Active Substance: DEMANNOSE
  7. TOPAMAX [Concomitant]
     Active Substance: TOPIRAMATE
  8. MINERALS\VITAMINS [Concomitant]
     Active Substance: MINERALS\VITAMINS
  9. MACROBID [Concomitant]
     Active Substance: NITROFURANTOIN\NITROFURANTOIN MONOHYDRATE
  10. WELCHOL [Concomitant]
     Active Substance: COLESEVELAM HYDROCHLORIDE
  11. MINERALS\VITAMINS [Concomitant]
     Active Substance: MINERALS\VITAMINS
  12. POTASSIUM [Concomitant]
     Active Substance: POTASSIUM
  13. ZOLOFT [Concomitant]
     Active Substance: SERTRALINE HYDROCHLORIDE
  14. SINGULAIR [Concomitant]
     Active Substance: MONTELUKAST SODIUM
  15. SEROQUEL [Concomitant]
     Active Substance: QUETIAPINE FUMARATE
  16. SYNTHROID [Concomitant]
     Active Substance: LEVOTHYROXINE SODIUM
  17. LOMOTIL [Concomitant]
     Active Substance: ATROPINE SULFATE\DIPHENOXYLATE HYDROCHLORIDE
  18. PLAVIX [Concomitant]
     Active Substance: CLOPIDOGREL BISULFATE
  19. CALCIUM [Concomitant]
     Active Substance: CALCIUM
  20. WELLBUTRIN XL [Concomitant]
     Active Substance: BUPROPION HYDROCHLORIDE
  21. LIPITOR [Concomitant]
     Active Substance: ATORVASTATIN CALCIUM
  22. XANAX [Concomitant]
     Active Substance: ALPRAZOLAM
  23. GABAPENTIN [Concomitant]
     Active Substance: GABAPENTIN
  24. UNSPECIFIED INGREDIENT [Concomitant]
     Active Substance: UNSPECIFIED INGREDIENT
  25. SYSTANE COMPLETE [Concomitant]
     Active Substance: PROPYLENE GLYCOL
  26. BENTYL [Concomitant]
     Active Substance: DICYCLOMINE HYDROCHLORIDE
  27. TYLENOL [Concomitant]
     Active Substance: ACETAMINOPHEN
  28. HYDROCORTISONE-ALOE [Concomitant]

REACTIONS (12)
  - Paraesthesia [Unknown]
  - Malaise [Unknown]
  - Product dose omission issue [Unknown]
  - Photophobia [Not Recovered/Not Resolved]
  - Eyelid oedema [Unknown]
  - Eye pain [Not Recovered/Not Resolved]
  - Fatigue [Unknown]
  - Erythema [Unknown]
  - Pigmentation disorder [Unknown]
  - Lymphoedema [Not Recovered/Not Resolved]
  - Eye irritation [Not Recovered/Not Resolved]
  - Rash [Unknown]

NARRATIVE: CASE EVENT DATE: 20240806
